FAERS Safety Report 10384538 (Version 3)
Quarter: 2014Q3

REPORT INFORMATION
  Report Type: Spontaneous
  Country: FI (occurrence: FI)
  Receive Date: 20140814
  Receipt Date: 20140924
  Transmission Date: 20150326
  Serious: Yes (Other)
  Sender: FDA-Public Use
  Company Number: FI-JNJFOC-20140803575

PATIENT

DRUGS (1)
  1. INFLIXIMAB, RECOMBINANT [Suspect]
     Active Substance: INFLIXIMAB
     Indication: CROHN^S DISEASE
     Dosage: INDUCTION REGIMEN AT 0, 2, 6 WEEKS AND MAINTENANCE THERAPY AT 8 WEEK INTERVAL.
     Route: 042

REACTIONS (15)
  - Osteomyelitis [Recovered/Resolved]
  - Conjunctivitis [Unknown]
  - Drug specific antibody present [Unknown]
  - Infusion related reaction [Unknown]
  - Dermatitis psoriasiform [Unknown]
  - Immunosuppressant drug level decreased [Unknown]
  - Anal abscess [Unknown]
  - Sinusitis [Unknown]
  - Ear infection [Unknown]
  - Arthralgia [Unknown]
  - Hepatic enzyme increased [Unknown]
  - Nausea [Unknown]
  - Fistula [Unknown]
  - Rash [Unknown]
  - Dermatitis atopic [Unknown]
